FAERS Safety Report 11363411 (Version 1)
Quarter: 2015Q3

REPORT INFORMATION
  Report Type: Spontaneous
  Country: US (occurrence: US)
  Receive Date: 20150811
  Receipt Date: 20150811
  Transmission Date: 20151125
  Serious: No
  Sender: FDA-Public Use
  Company Number: US-ASTRAZENECA-2015SE74676

PATIENT
  Age: 45 Year
  Sex: Female

DRUGS (2)
  1. ZORVOLEX [Concomitant]
     Active Substance: DICLOFENAC
     Indication: PAIN
     Route: 065
  2. MOVANTIK [Suspect]
     Active Substance: NALOXEGOL OXALATE
     Indication: CONSTIPATION
     Route: 048

REACTIONS (1)
  - Rash [Unknown]
